FAERS Safety Report 10430233 (Version 1)
Quarter: 2014Q3

REPORT INFORMATION
  Report Type: Spontaneous
  Country: US (occurrence: None)
  Receive Date: 20140903
  Receipt Date: 20140903
  Transmission Date: 20150326
  Serious: Yes (Death)
  Sender: FDA-Public Use
  Company Number: None

PATIENT
  Age: 24 Year
  Sex: Male

DRUGS (1)
  1. LEUKINE [Suspect]
     Active Substance: SARGRAMOSTIM
     Dosage: 500MG   SQ
     Route: 058

REACTIONS (1)
  - Death [None]

NARRATIVE: CASE EVENT DATE: 20140829
